FAERS Safety Report 15968040 (Version 7)
Quarter: 2019Q3

REPORT INFORMATION
  Report Type: Spontaneous
  Country: US (occurrence: US)
  Receive Date: 20190215
  Receipt Date: 20190923
  Transmission Date: 20191004
  Serious: Yes (Hospitalization, Other)
  Sender: FDA-Public Use
  Company Number: US-JNJFOC-20190215120

PATIENT
  Sex: Male
  Weight: 63.56 kg

DRUGS (2)
  1. INVEGA SUSTENNA [Suspect]
     Active Substance: PALIPERIDONE PALMITATE
     Indication: AFFECTIVE DISORDER
     Route: 030
     Dates: start: 201501, end: 201501
  2. INVEGA SUSTENNA [Suspect]
     Active Substance: PALIPERIDONE PALMITATE
     Indication: SCHIZOAFFECTIVE DISORDER BIPOLAR TYPE
     Route: 030
     Dates: start: 201001

REACTIONS (22)
  - Skin bacterial infection [Not Recovered/Not Resolved]
  - Muscle spasms [Not Recovered/Not Resolved]
  - Rash [Not Recovered/Not Resolved]
  - Hyperprolactinaemia [Not Recovered/Not Resolved]
  - Sedation [Unknown]
  - Palpitations [Not Recovered/Not Resolved]
  - Weight decreased [Unknown]
  - Gynaecomastia [Unknown]
  - Extrapyramidal disorder [Unknown]
  - Somnolence [Unknown]
  - Agitation [Unknown]
  - Dehydration [Not Recovered/Not Resolved]
  - Weight fluctuation [Not Recovered/Not Resolved]
  - Heart rate decreased [Not Recovered/Not Resolved]
  - Hypotension [Unknown]
  - Thyroid cyst [Not Recovered/Not Resolved]
  - Haemoglobin decreased [Unknown]
  - Angina pectoris [Not Recovered/Not Resolved]
  - Serum serotonin decreased [Not Recovered/Not Resolved]
  - Syringe issue [Unknown]
  - Insomnia [Recovered/Resolved]
  - Orthostatic hypotension [Unknown]

NARRATIVE: CASE EVENT DATE: 2015
